FAERS Safety Report 6429374-7 (Version None)
Quarter: 2009Q4

REPORT INFORMATION
  Report Type: 
  Country: None (occurrence: None)
  Receive Date: 20091105
  Receipt Date: 20081216
  Transmission Date: 20100525
  Serious: No
  Sender: FDA-Public Use
  Company Number: US-ABBOTT-08P-163-0488645-00

PATIENT
  Sex: Male
  Weight: 74.91 kg

DRUGS (12)
  1. KALETRA [Suspect]
     Indication: HIV INFECTION
     Dosage: 200/50MG
     Route: 048
     Dates: start: 20080901
  2. TRUVADA [Concomitant]
     Indication: HIV INFECTION
     Dosage: 200/300 MG
     Dates: start: 20080901
  3. AMITRIPTYLINE [Concomitant]
     Indication: INSOMNIA
  4. CLONAZEPAM [Concomitant]
     Indication: DYSKINESIA
     Dosage: 1 1/5 PILLS BID
     Dates: start: 19980101
  5. PRILOSEC [Concomitant]
     Indication: GASTROOESOPHAGEAL REFLUX DISEASE
     Route: 048
     Dates: start: 19980101
  6. HYDROXYZINE [Concomitant]
     Indication: PRURITUS
     Route: 048
  7. PHENERGAN HCL [Concomitant]
     Indication: NAUSEA
  8. CARBAMAZEPINE [Concomitant]
     Indication: NEUROPATHY PERIPHERAL
     Dosage: 1 TAB IN AM    1.5 TAB IN PM
  9. CARBAMAZEPINE [Concomitant]
     Route: 048
  10. MORPHINE SULFATE [Concomitant]
     Indication: PAIN
  11. MORPHINE SULFATE IS [Concomitant]
     Indication: PAIN
  12. TYLENOL W/ CODEINE NO. 4 [Concomitant]
     Indication: HEADACHE

REACTIONS (4)
  - APHASIA [None]
  - OEDEMA PERIPHERAL [None]
  - SLEEP DISORDER [None]
  - SOMNAMBULISM [None]
